FAERS Safety Report 6975887-9 (Version None)
Quarter: 2010Q3

REPORT INFORMATION
  Report Type: 
  Country: None (occurrence: None)
  Receive Date: 20100910
  Receipt Date: 20100902
  Transmission Date: 20110219
  Serious: Yes (Other)
  Sender: FDA-Public Use
  Company Number: JP-PFIZER INC-2010111160

PATIENT
  Age: 83 Year
  Sex: Female

DRUGS (1)
  1. AMLODIPINE BESYLATE [Suspect]
     Dosage: 5 MG DAILY
     Route: 048

REACTIONS (2)
  - BLOOD SODIUM DECREASED [None]
  - GENERALISED OEDEMA [None]
